FAERS Safety Report 9256769 (Version 3)
Quarter: 2014Q1

REPORT INFORMATION
  Report Type: Spontaneous
  Country: US (occurrence: US)
  Receive Date: 20130426
  Receipt Date: 20140214
  Transmission Date: 20141002
  Serious: Yes (Other)
  Sender: FDA-Public Use
  Company Number: US-ASTRAZENECA-2013SE27523

PATIENT
  Age: 61 Year
  Sex: Female
  Weight: 108.9 kg

DRUGS (13)
  1. NEXIUM [Suspect]
     Indication: GASTROOESOPHAGEAL REFLUX DISEASE
     Dosage: TWO TIMES IN A DAY
     Route: 048
     Dates: start: 1990
  2. NEXIUM [Suspect]
     Indication: GASTROOESOPHAGEAL REFLUX DISEASE
     Route: 048
     Dates: start: 20070109
  3. CYCLOBENZAPINE [Concomitant]
     Indication: MUSCLE SPASMS
  4. DICYCLOMINE [Concomitant]
  5. HALOPERIDOL [Concomitant]
     Indication: SCHIZOPHRENIA
  6. ACETAZOLAMIDE [Concomitant]
     Indication: FLUID RETENTION
  7. DEMADEX [Concomitant]
     Indication: FLUID RETENTION
  8. ALPRAZOLAM [Concomitant]
  9. OXYCODONE [Concomitant]
  10. PROMETHAZINE [Concomitant]
  11. TORSEMIDE [Concomitant]
  12. LEXAPRO [Concomitant]
  13. LORCET [Concomitant]

REACTIONS (14)
  - Neoplasm malignant [Unknown]
  - Osteoporosis [Unknown]
  - Bone disorder [Unknown]
  - Wrist fracture [Unknown]
  - Lower limb fracture [Unknown]
  - Cataract [Unknown]
  - Chronic obstructive pulmonary disease [Unknown]
  - Cardiovascular disorder [Unknown]
  - Depression [Unknown]
  - Glaucoma [Unknown]
  - Scoliosis [Unknown]
  - Arthritis [Unknown]
  - Calcium deficiency [Unknown]
  - Osteopenia [Unknown]
